FAERS Safety Report 9387086 (Version 1)
Quarter: 2013Q3

REPORT INFORMATION
  Report Type: Spontaneous
  Country: GB (occurrence: GB)
  Receive Date: 20130708
  Receipt Date: 20130708
  Transmission Date: 20140515
  Serious: Yes (Other)
  Sender: FDA-Public Use
  Company Number: PHHY2009GB14818

PATIENT
  Age: 31 Year
  Sex: Female

DRUGS (4)
  1. BROMOCRIPTINE [Suspect]
     Indication: HYPERPROLACTINAEMIA
     Dosage: 2.5 MG, BID
  2. BROMOCRIPTINE [Suspect]
     Indication: PITUITARY TUMOUR BENIGN
     Dosage: UNK UKN, UNK
  3. BROMOCRIPTINE [Suspect]
     Indication: WITHDRAWAL BLEED
  4. PROGESTERONE [Concomitant]
     Dosage: UNK UKN, UNK

REACTIONS (3)
  - Drug intolerance [Unknown]
  - Blood prolactin increased [Unknown]
  - Nausea [Unknown]
